FAERS Safety Report 6458590-3 (Version None)
Quarter: 2009Q4

REPORT INFORMATION
  Report Type: 
  Country: None (occurrence: None)
  Receive Date: 20091126
  Receipt Date: 20091118
  Transmission Date: 20100525
  Serious: Yes (Other)
  Sender: FDA-Public Use
  Company Number: US-RB-025830-09

PATIENT
  Age: 56 Year
  Sex: Female

DRUGS (3)
  1. MUCINEX D [Suspect]
     Route: 048
  2. MUCINEX D [Suspect]
     Route: 048
  3. MUCINEX D [Suspect]
     Indication: FEELING ABNORMAL
     Route: 048

REACTIONS (4)
  - BALANCE DISORDER [None]
  - DIZZINESS [None]
  - HEART RATE IRREGULAR [None]
  - INSOMNIA [None]
